FAERS Safety Report 8797821 (Version 1)
Quarter: 2012Q4

REPORT INFORMATION
  Report Type: Spontaneous
  Country: US (occurrence: None)
  Receive Date: 20120917
  Receipt Date: 20120917
  Transmission Date: 20130627
  Serious: Yes (Hospitalization)
  Sender: FDA-Public Use
  Company Number: None

PATIENT
  Age: 60 Year
  Sex: Male
  Weight: 75 kg

DRUGS (3)
  1. LORAZEPAM 0.5 MG [Suspect]
     Indication: NAUSEA
     Route: 048
     Dates: start: 20120905, end: 20120911
  2. TEMODAR [Concomitant]
  3. DEXAMETHASONE [Concomitant]

REACTIONS (3)
  - Memory impairment [None]
  - Mental status changes [None]
  - Incorrect dose administered [None]
